FAERS Safety Report 9165871 (Version 3)
Quarter: 2013Q2

REPORT INFORMATION
  Report Type: Spontaneous
  Country: US (occurrence: US)
  Receive Date: 20130315
  Receipt Date: 20130517
  Transmission Date: 20140414
  Serious: Yes (Other)
  Sender: FDA-Public Use
  Company Number: US-BAYER-2013-030599

PATIENT
  Age: 28 Year
  Sex: Female
  Weight: 125 kg

DRUGS (8)
  1. MIRENA [Suspect]
     Indication: CONTRACEPTION
     Dosage: 20 MCG/24HR, CONT
     Route: 015
     Dates: start: 20111101, end: 20130321
  2. COUMADIN [Concomitant]
  3. ALBUTEROL [Concomitant]
  4. LEXAPRO [Concomitant]
  5. FLONASE [Concomitant]
  6. HYDROXYCHLOROQUINE [Concomitant]
  7. METOPROLOL [Concomitant]
  8. WARFARIN [Concomitant]

REACTIONS (4)
  - Ectopic pregnancy with intrauterine device [None]
  - Drug ineffective [None]
  - Device dislocation [Recovered/Resolved]
  - Vaginal haemorrhage [None]
